FAERS Safety Report 9496240 (Version 6)
Quarter: 2014Q2

REPORT INFORMATION
  Report Type: Spontaneous
  Country: CH (occurrence: CH)
  Receive Date: 20130904
  Receipt Date: 20140625
  Transmission Date: 20141212
  Serious: Yes (Hospitalization, Disabling)
  Sender: FDA-Public Use
  Company Number: CH-BAYER-2013-106295

PATIENT
  Age: 28 Year
  Sex: Female

DRUGS (2)
  1. BETAFERON [Suspect]
     Indication: CLINICALLY ISOLATED SYNDROME
     Dosage: 250 ?G, QOD
     Route: 058
     Dates: start: 201306, end: 20130902
  2. NUVARING [Suspect]
     Indication: CONTRACEPTION
     Dosage: 1 DF, UNK
     Route: 067
     Dates: start: 2012, end: 20130902

REACTIONS (4)
  - Diplegia [Recovering/Resolving]
  - Aphasia [Recovering/Resolving]
  - Cerebral infarction [Recovering/Resolving]
  - Antiphospholipid syndrome [None]
